FAERS Safety Report 9339331 (Version 1)
Quarter: 2013Q2

REPORT INFORMATION
  Report Type: Spontaneous
  Country: ES (occurrence: ES)
  Receive Date: 20130610
  Receipt Date: 20130610
  Transmission Date: 20140414
  Serious: Yes (Hospitalization)
  Sender: FDA-Public Use
  Company Number: ES-FRI-1000045796

PATIENT
  Age: 81 Year
  Sex: Male

DRUGS (1)
  1. ACLIDINIUM [Suspect]
     Indication: CHRONIC OBSTRUCTIVE PULMONARY DISEASE
     Dosage: 644 MCG
     Route: 055
     Dates: start: 20130330, end: 20130406

REACTIONS (6)
  - Cough [Recovering/Resolving]
  - Headache [Recovering/Resolving]
  - Malaise [Recovering/Resolving]
  - Hypotension [Unknown]
  - Dyspnoea [Unknown]
  - Treatment noncompliance [None]
